FAERS Safety Report 22650526 (Version 1)
Quarter: 2023Q2

REPORT INFORMATION
  Report Type: Spontaneous
  Country: CN (occurrence: None)
  Receive Date: 20230628
  Receipt Date: 20230628
  Transmission Date: 20230722
  Serious: Yes (Hospitalization)
  Sender: FDA-Public Use
  Company Number: CN-ROCHE-3378510

PATIENT
  Age: 60 Year
  Sex: Female
  Weight: 59 kg

DRUGS (2)
  1. KADCYLA [Suspect]
     Active Substance: ADO-TRASTUZUMAB EMTANSINE
     Indication: Breast cancer
     Route: 041
     Dates: start: 20230421, end: 20230512
  2. KADCYLA [Suspect]
     Active Substance: ADO-TRASTUZUMAB EMTANSINE
     Route: 041
     Dates: start: 20230512, end: 20230602

REACTIONS (2)
  - Cardiotoxicity [Recovering/Resolving]
  - Myelosuppression [Recovering/Resolving]

NARRATIVE: CASE EVENT DATE: 20230603
